FAERS Safety Report 12901398 (Version 1)
Quarter: 2016Q4

REPORT INFORMATION
  Report Type: Spontaneous
  Country: ES (occurrence: ES)
  Receive Date: 20161101
  Receipt Date: 20161101
  Transmission Date: 20170207
  Serious: Yes (Hospitalization, Other)
  Sender: FDA-Public Use
  Company Number: ES-ASTRAZENECA-2016SF12031

PATIENT
  Age: 61 Year
  Sex: Female

DRUGS (5)
  1. SYMBICORT [Suspect]
     Active Substance: BUDESONIDE\FORMOTEROL FUMARATE DIHYDRATE
     Indication: ASTHMA
     Route: 055
     Dates: start: 20110423
  2. OMEPRAZOLE. [Concomitant]
     Active Substance: OMEPRAZOLE
     Indication: PROPHYLAXIS AGAINST GASTROINTESTINAL ULCER
     Route: 048
     Dates: start: 20110423
  3. EBASTINE [Concomitant]
     Active Substance: EBASTINE
     Indication: RHINITIS ALLERGIC
     Route: 048
     Dates: start: 20110423
  4. CODEISAN [Concomitant]
     Indication: PAIN
     Dosage: LATENCY: 149 DAYS
     Route: 048
     Dates: start: 20150507
  5. PREDNISONE. [Interacting]
     Active Substance: PREDNISONE
     Indication: MYELOID LEUKAEMIA
     Route: 048
     Dates: start: 20150507, end: 20151002

REACTIONS (19)
  - Acute myeloid leukaemia [Unknown]
  - Urinary tract infection [Unknown]
  - Superinfection bacterial [Unknown]
  - Drug interaction [Unknown]
  - Clostridium difficile colitis [Unknown]
  - Febrile neutropenia [Unknown]
  - Temporal arteritis [Unknown]
  - Hallucination [Recovered/Resolved]
  - Pulmonary embolism [Unknown]
  - Septic shock [Unknown]
  - Clostridial sepsis [Unknown]
  - Gastrointestinal haemorrhage [Unknown]
  - Pulmonary tuberculosis [Unknown]
  - Optic neuritis [Unknown]
  - Nervous system disorder [Unknown]
  - Diverticulum [Unknown]
  - Klebsiella infection [Unknown]
  - Atrial fibrillation [Unknown]
  - Psoriatic arthropathy [Unknown]

NARRATIVE: CASE EVENT DATE: 2011
